FAERS Safety Report 8975795 (Version 1)
Quarter: 2012Q4

REPORT INFORMATION
  Report Type: 
  Country: JP (occurrence: TW)
  Receive Date: 20121219
  Receipt Date: 20121219
  Transmission Date: 20130627
  Serious: Yes (Other)
  Sender: FDA-Public Use
  Company Number: TW-BRISTOL-MYERS SQUIBB COMPANY-17213935

PATIENT
  Sex: Male
  Weight: 70 kg

DRUGS (2)
  1. MITOMYCIN-C [Suspect]
     Indication: BLADDER NEOPLASM
     Route: 043
     Dates: start: 20120817, end: 20120817
  2. KEFLEX [Suspect]
     Indication: BLADDER NEOPLASM
     Dosage: FrQ: Q8h
     Route: 048
     Dates: start: 20120817, end: 20120817

REACTIONS (1)
  - Pruritus generalised [Recovering/Resolving]
